FAERS Safety Report 20039531 (Version 2)
Quarter: 2021Q4

REPORT INFORMATION
  Report Type: Report from Study
  Country: NL (occurrence: NL)
  Receive Date: 20211106
  Receipt Date: 20211111
  Transmission Date: 20220303
  Serious: Yes (Other)
  Sender: FDA-Public Use
  Company Number: NL-ABBVIE-18K-114-2423349-00

PATIENT
  Sex: Male

DRUGS (11)
  1. CARBIDOPA\LEVODOPA [Suspect]
     Active Substance: CARBIDOPA\LEVODOPA
     Indication: Parkinson^s disease
     Dosage: MD: 5, CD: 3.6, ED: 2
     Route: 050
     Dates: start: 201807, end: 201807
  2. CARBIDOPA\LEVODOPA [Suspect]
     Active Substance: CARBIDOPA\LEVODOPA
     Dosage: MD 4.0, CD 4.2, ED 1.5
     Route: 050
     Dates: start: 201807, end: 201807
  3. CARBIDOPA\LEVODOPA [Suspect]
     Active Substance: CARBIDOPA\LEVODOPA
     Dosage: MD: 7.2, CD: 4.2, ED: 1.7
     Route: 050
     Dates: start: 201807, end: 201807
  4. CARBIDOPA\LEVODOPA [Suspect]
     Active Substance: CARBIDOPA\LEVODOPA
     Dosage: MD: 8.2ML CD: 4.3ML/H ED: 2.2ML
     Route: 050
     Dates: start: 20180730
  5. CARBIDOPA\LEVODOPA [Suspect]
     Active Substance: CARBIDOPA\LEVODOPA
     Dosage: MD: 8.2 ML; CD: 4.6 ML/H; ED 2.2 ML
     Route: 050
  6. CARBIDOPA\LEVODOPA [Suspect]
     Active Substance: CARBIDOPA\LEVODOPA
     Dosage: MD: 9.0 ML, CD: 4.6 ML/H, ED: 2.2 ML
     Route: 050
  7. LEVODOPA/CARBIDOPA RET [Concomitant]
     Indication: Parkinson^s disease
  8. SILVER NITRATE [Concomitant]
     Active Substance: SILVER NITRATE
     Indication: Fibroma
  9. POLYETHYLENE GLYCOLS [Concomitant]
     Active Substance: POLYETHYLENE GLYCOLS
     Indication: Abnormal faeces
  10. MOVICOLON [Concomitant]
     Active Substance: POLYETHYLENE GLYCOL 3350\POTASSIUM CHLORIDE\SODIUM BICARBONATE\SODIUM CHLORIDE
     Indication: Abnormal faeces
  11. FLUDROCORTISONE [Concomitant]
     Active Substance: FLUDROCORTISONE
     Indication: Hypotension

REACTIONS (72)
  - Depressed level of consciousness [Not Recovered/Not Resolved]
  - Presyncope [Not Recovered/Not Resolved]
  - Muscle rigidity [Not Recovered/Not Resolved]
  - Fatigue [Not Recovered/Not Resolved]
  - Pyrexia [Not Recovered/Not Resolved]
  - Dizziness [Recovered/Resolved]
  - Hyperkinesia [Not Recovered/Not Resolved]
  - Abnormal dreams [Not Recovered/Not Resolved]
  - Weight increased [Recovered/Resolved]
  - Abdominal distension [Recovered/Resolved]
  - Abdominal discomfort [Recovered/Resolved]
  - Somnolence [Not Recovered/Not Resolved]
  - Therapeutic product effect incomplete [Not Recovered/Not Resolved]
  - Constipation [Not Recovered/Not Resolved]
  - Dyskinesia [Recovered/Resolved]
  - Hypertension [Recovering/Resolving]
  - Therapeutic product effect variable [Not Recovered/Not Resolved]
  - Dyskinesia [Recovered/Resolved]
  - Catheter site scab [Recovered/Resolved]
  - Medical device site discolouration [Unknown]
  - Hallucination [Recovered/Resolved]
  - Stoma site erythema [Recovered/Resolved]
  - Therapeutic product effect incomplete [Recovered/Resolved]
  - General physical health deterioration [Not Recovered/Not Resolved]
  - Speech disorder [Not Recovered/Not Resolved]
  - Salivary hypersecretion [Not Recovered/Not Resolved]
  - Incontinence [Not Recovered/Not Resolved]
  - Dysphagia [Not Recovered/Not Resolved]
  - Bradyphrenia [Not Recovered/Not Resolved]
  - Stoma site erythema [Not Recovered/Not Resolved]
  - Fibroma [Not Recovered/Not Resolved]
  - Hallucination [Recovered/Resolved]
  - Dyskinesia [Recovered/Resolved]
  - Pain [Not Recovered/Not Resolved]
  - Gait disturbance [Not Recovered/Not Resolved]
  - Reduced facial expression [Not Recovered/Not Resolved]
  - Muscle rigidity [Not Recovered/Not Resolved]
  - Memory impairment [Not Recovered/Not Resolved]
  - Aphasia [Not Recovered/Not Resolved]
  - Stoma site discharge [Not Recovered/Not Resolved]
  - Stoma site inflammation [Not Recovered/Not Resolved]
  - Muscle spasms [Not Recovered/Not Resolved]
  - Urinary tract infection [Recovered/Resolved]
  - Parkinson^s disease [Not Recovered/Not Resolved]
  - Lethargy [Not Recovered/Not Resolved]
  - Stoma site irritation [Not Recovered/Not Resolved]
  - Bradykinesia [Not Recovered/Not Resolved]
  - Device dislocation [Not Recovered/Not Resolved]
  - Dependent personality disorder [Not Recovered/Not Resolved]
  - Walking aid user [Not Recovered/Not Resolved]
  - Bradykinesia [Not Recovered/Not Resolved]
  - Dyschezia [Recovering/Resolving]
  - Loss of personal independence in daily activities [Not Recovered/Not Resolved]
  - Freezing phenomenon [Not Recovered/Not Resolved]
  - Weight increased [Recovered/Resolved]
  - Cognitive disorder [Not Recovered/Not Resolved]
  - Impaired quality of life [Unknown]
  - Freezing phenomenon [Not Recovered/Not Resolved]
  - Confusional state [Recovering/Resolving]
  - Apraxia [Not Recovered/Not Resolved]
  - Stoma site erythema [Not Recovered/Not Resolved]
  - Medical device site pain [Unknown]
  - Unevaluable event [Not Recovered/Not Resolved]
  - Urinary tract infection [Unknown]
  - On and off phenomenon [Recovering/Resolving]
  - Delirium [Not Recovered/Not Resolved]
  - Tremor [Not Recovered/Not Resolved]
  - Hallucination [Recovering/Resolving]
  - Appetite disorder [Not Recovered/Not Resolved]
  - SARS-CoV-2 test positive [Not Recovered/Not Resolved]
  - Device issue [Unknown]
  - Dysphagia [Not Recovered/Not Resolved]

NARRATIVE: CASE EVENT DATE: 20180101
